FAERS Safety Report 22100682 (Version 1)
Quarter: 2023Q1

REPORT INFORMATION
  Report Type: Report from Study
  Country: US (occurrence: US)
  Receive Date: 20230316
  Receipt Date: 20230316
  Transmission Date: 20230417
  Serious: Yes (Other)
  Sender: FDA-Public Use
  Company Number: US-ABBVIE-4341796

PATIENT
  Age: 66 Year
  Sex: Male

DRUGS (2)
  1. HUMIRA [Suspect]
     Active Substance: ADALIMUMAB
     Indication: Crohn^s disease
     Dosage: CF/FORM STRENGTH: 40 MG
     Route: 058
  2. HUMIRA [Suspect]
     Active Substance: ADALIMUMAB
     Dosage: CF/FORM STRENGTH: 40 MG
     Route: 058
     Dates: start: 20230226

REACTIONS (4)
  - Limb operation [Unknown]
  - Road traffic accident [Unknown]
  - Neck injury [Unknown]
  - Injury [Unknown]

NARRATIVE: CASE EVENT DATE: 20220917
